FAERS Safety Report 5483188-3 (Version None)
Quarter: 2007Q4

REPORT INFORMATION
  Report Type: 
  Country: None (occurrence: None)
  Receive Date: 20071011
  Receipt Date: 20071002
  Transmission Date: 20080405
  Serious: Yes (Disabling)
  Sender: FDA-Public Use
  Company Number: FR-PFIZER INC-2007060194

PATIENT
  Sex: Male

DRUGS (7)
  1. CADUET [Suspect]
     Dates: start: 20070314, end: 20070101
  2. LEVODOPA BENSERAZIDE HYDROCHLO [Concomitant]
  3. PAROXETINE [Concomitant]
  4. SERMION [Concomitant]
  5. ALLOPURINOL [Concomitant]
  6. GLUCOPHAGE [Concomitant]
  7. MODOPAR [Concomitant]

REACTIONS (6)
  - ANOREXIA [None]
  - DIZZINESS [None]
  - GAIT DISTURBANCE [None]
  - NAUSEA [None]
  - SOMNOLENCE [None]
  - VERTIGO [None]
